FAERS Safety Report 14841202 (Version 2)
Quarter: 2018Q3

REPORT INFORMATION
  Report Type: Report from Study
  Country: FR (occurrence: FR)
  Receive Date: 20180503
  Receipt Date: 20180725
  Transmission Date: 20181010
  Serious: Yes (Hospitalization)
  Sender: FDA-Public Use
  Company Number: FR-BAYER-2018-081777

PATIENT
  Age: 65 Year
  Sex: Male
  Weight: 75 kg

DRUGS (31)
  1. BISOPROLOL [Concomitant]
     Active Substance: BISOPROLOL
  2. FUROSEMIDE. [Concomitant]
     Active Substance: FUROSEMIDE
     Dosage: 40 MG, UNK
  3. IMOVANE [Concomitant]
     Active Substance: ZOPICLONE
     Dosage: Q7.5 MG, HS
     Route: 048
  4. PLAVIX [Concomitant]
     Active Substance: CLOPIDOGREL BISULFATE
  5. KARDEGIC [Concomitant]
     Active Substance: ASPIRIN DL-LYSINE
  6. METFORMIN [Concomitant]
     Active Substance: METFORMIN HYDROCHLORIDE
     Dosage: 1000 MG, BID
  7. LASILIX [Concomitant]
     Active Substance: FUROSEMIDE
     Dosage: 40 MG, OM
     Route: 048
  8. OFLOCET [Concomitant]
     Active Substance: OFLOXACIN
     Dosage: 200 MG, UNK
     Route: 048
  9. ACETYLSALICYLIC ACID({=100 MG) [Suspect]
     Active Substance: ASPIRIN
     Indication: CARDIOVASCULAR EVENT PROPHYLAXIS
     Dosage: 200 MG, QD
     Route: 048
     Dates: start: 20171103, end: 20171223
  10. TAHOR [Concomitant]
     Active Substance: ATORVASTATIN CALCIUM
  11. PLAVIX [Concomitant]
     Active Substance: CLOPIDOGREL BISULFATE
     Dosage: 75 MG, QD
  12. GALVUS [Concomitant]
     Active Substance: VILDAGLIPTIN
  13. GLICLAZIDE [Concomitant]
     Active Substance: GLICLAZIDE
     Dosage: 60 MG, QD
  14. EPLERENONE. [Concomitant]
     Active Substance: EPLERENONE
     Dosage: 25 MG, QD
  15. BISOPROLOL [Concomitant]
     Active Substance: BISOPROLOL
     Dosage: 1.25 MG, BID
  16. KARDEGIC [Concomitant]
     Active Substance: ASPIRIN DL-LYSINE
     Dosage: 75 MG, QD
  17. COLCHIMAX [COLCHICINE,DICYCLOVERINE HYDROCHLORIDE] [Concomitant]
     Active Substance: COLCHICINE
     Dosage: UNK UNK, QD
  18. ACETYLSALICYLIC ACID({=100 MG) [Suspect]
     Active Substance: ASPIRIN
     Indication: CARDIOVASCULAR EVENT PROPHYLAXIS
     Dosage: 200 MG, QD
     Route: 048
     Dates: start: 20180112
  19. LANSOPRAZOLE. [Concomitant]
     Active Substance: LANSOPRAZOLE
     Dosage: UNK, QD
  20. NOVONORM [Concomitant]
     Active Substance: REPAGLINIDE
  21. ATORVASTATIN [Concomitant]
     Active Substance: ATORVASTATIN
     Dosage: 40 MG, UNK
  22. TICAGRELOR. [Concomitant]
     Active Substance: TICAGRELOR
     Dosage: 90 MG, BID
  23. BRILIQUE [Concomitant]
     Active Substance: TICAGRELOR
     Indication: PLATELET AGGREGATION INHIBITION
  24. LEVOTHYROX [Concomitant]
     Active Substance: LEVOTHYROXINE
     Dosage: 25 MG, QD
  25. ATORVASTATIN [Concomitant]
     Active Substance: ATORVASTATIN
     Dosage: 40 MG, QD
  26. CARDENSIEL [Concomitant]
     Active Substance: BISOPROLOL FUMARATE
     Dosage: 1.25 MG, OM
  27. LANSOPRAZOLE. [Concomitant]
     Active Substance: LANSOPRAZOLE
     Dosage: 1 DF, UNK
     Route: 048
  28. LEVOTHYROX [Concomitant]
     Active Substance: LEVOTHYROXINE
     Dosage: 25 ?G, QD
  29. VILDAGLIPTIN [Concomitant]
     Active Substance: VILDAGLIPTIN
     Dosage: 50 MG, BID
  30. RAMIPRIL. [Concomitant]
     Active Substance: RAMIPRIL
     Dosage: 1.25 MG, QD
  31. NOVONORM [Concomitant]
     Active Substance: REPAGLINIDE
     Dosage: 4 MG, QD

REACTIONS (4)
  - Acute kidney injury [Recovered/Resolved]
  - Malaise [Recovered/Resolved]
  - Implantable defibrillator insertion [Recovered/Resolved]
  - Cardiac failure [Recovered/Resolved]

NARRATIVE: CASE EVENT DATE: 20171223
